FAERS Safety Report 13816445 (Version 1)
Quarter: 2017Q3

REPORT INFORMATION
  Report Type: Spontaneous
  Country: US (occurrence: US)
  Receive Date: 20170731
  Receipt Date: 20170731
  Transmission Date: 20171127
  Serious: No
  Sender: FDA-Public Use
  Company Number: US-JNJFOC-20170506890

PATIENT
  Age: 58 Year
  Sex: Female
  Weight: 43.09 kg

DRUGS (4)
  1. ZYRTEC [Suspect]
     Active Substance: CETIRIZINE HYDROCHLORIDE
     Indication: HYPERSENSITIVITY
     Dosage: FOR YEARS
     Route: 048
  2. PROTONIX [Interacting]
     Active Substance: PANTOPRAZOLE SODIUM
     Indication: ANTACID THERAPY
     Route: 065
  3. ZYRTEC [Suspect]
     Active Substance: CETIRIZINE HYDROCHLORIDE
     Indication: DUST ALLERGY
     Dosage: FOR YEARS
     Route: 048
  4. ZYRTEC [Suspect]
     Active Substance: CETIRIZINE HYDROCHLORIDE
     Indication: SEASONAL ALLERGY
     Dosage: FOR YEARS
     Route: 048

REACTIONS (2)
  - Drug interaction [Unknown]
  - Drug ineffective [Unknown]
